FAERS Safety Report 14295844 (Version 2)
Quarter: 2018Q1

REPORT INFORMATION
  Report Type: Spontaneous
  Country: US (occurrence: US)
  Receive Date: 20171218
  Receipt Date: 20180115
  Transmission Date: 20180509
  Serious: No
  Sender: FDA-Public Use
  Company Number: US-PFIZER INC-2017539077

PATIENT
  Age: 12 Year
  Sex: Male

DRUGS (3)
  1. CICLOPIROX. [Concomitant]
     Active Substance: CICLOPIROX
     Indication: PERIORAL DERMATITIS
     Dosage: UNK UNK, 2X/DAY
     Route: 061
     Dates: start: 20171214
  2. EUCRISA [Suspect]
     Active Substance: CRISABOROLE
     Indication: DERMATITIS ATOPIC
     Dosage: UNK UNK, 2X/DAY
     Route: 061
     Dates: start: 20171214, end: 20171215
  3. EUCRISA [Suspect]
     Active Substance: CRISABOROLE
     Indication: PERIORAL DERMATITIS

REACTIONS (1)
  - Application site pain [Recovered/Resolved]

NARRATIVE: CASE EVENT DATE: 20171214
